FAERS Safety Report 17934950 (Version 4)
Quarter: 2020Q3

REPORT INFORMATION
  Report Type: Report from Study
  Country: KR (occurrence: KR)
  Receive Date: 20200624
  Receipt Date: 20200804
  Transmission Date: 20201103
  Serious: Yes (Death, Hospitalization, Other)
  Sender: FDA-Public Use
  Company Number: KR-JAZZ-2020-KR-008019

PATIENT
  Age: 3 Year
  Sex: Male
  Weight: 13.8 kg

DRUGS (10)
  1. LEVETIRACETAM. [Concomitant]
     Active Substance: LEVETIRACETAM
     Indication: SEIZURE PROPHYLAXIS
     Dosage: 140 MILLIGRAM, BID
     Route: 042
     Dates: start: 20200706, end: 20200722
  2. DEFITELIO [Suspect]
     Active Substance: DEFIBROTIDE SODIUM
     Dosage: 6.25 MILLIGRAM/KILOGRAM
     Route: 042
     Dates: start: 20200708, end: 20200718
  3. MYCAMINE [Concomitant]
     Active Substance: MICAFUNGIN SODIUM
     Indication: INFECTION PROPHYLAXIS
     Dosage: 14 MILLIGRAM, QD
     Route: 042
     Dates: start: 20200512, end: 20200618
  4. IMMUNOGLOBULIN G HUMAN [Concomitant]
     Active Substance: HUMAN IMMUNOGLOBULIN G
     Indication: PRODUCT USED FOR UNKNOWN INDICATION
     Dosage: UNK
     Route: 042
     Dates: start: 20200725, end: 20200725
  5. GANCICLOVIR. [Concomitant]
     Active Substance: GANCICLOVIR
     Indication: PRODUCT USED FOR UNKNOWN INDICATION
     Dosage: UNK
     Route: 042
     Dates: start: 20200718, end: 20200725
  6. TOCOPHEROL [Concomitant]
     Active Substance: TOCOPHEROL
     Indication: PAIN PROPHYLAXIS
     Dosage: 50 MILLIGRAM, QD
     Route: 048
     Dates: start: 20200608, end: 20200725
  7. TAZOPERAN [Concomitant]
     Indication: INFECTION PROPHYLAXIS
     Dosage: 0.8 GRAM, TID
     Route: 042
     Dates: start: 20200609, end: 20200626
  8. URSA [Concomitant]
     Active Substance: URSODIOL
     Indication: PROPHYLAXIS
     Dosage: 100 MILLIGRAM, TID
     Route: 048
     Dates: start: 20200608
  9. ALOSTIN [ALPROSTADIL] [Concomitant]
     Indication: PROPHYLAXIS
     Dosage: 25 MICROGRAM, QD
     Route: 042
     Dates: start: 20200506, end: 20200526
  10. DEFITELIO [Suspect]
     Active Substance: DEFIBROTIDE SODIUM
     Indication: VENOOCCLUSIVE DISEASE
     Dosage: 6.25 MILLIGRAM/KILOGRAM, QID
     Route: 042
     Dates: start: 20200610, end: 20200613

REACTIONS (3)
  - Renal haematoma [Recovered/Resolved]
  - Urinary bladder haemorrhage [Recovered/Resolved]
  - Pulmonary haemorrhage [Fatal]

NARRATIVE: CASE EVENT DATE: 202006
